FAERS Safety Report 23820766 (Version 1)
Quarter: 2024Q2

REPORT INFORMATION
  Report Type: Report from Study
  Country: BR (occurrence: BR)
  Receive Date: 20240506
  Receipt Date: 20240506
  Transmission Date: 20240716
  Serious: Yes (Other)
  Sender: FDA-Public Use
  Company Number: BR-ABBVIE-5743391

PATIENT
  Sex: Male

DRUGS (13)
  1. BOTOX [Suspect]
     Active Substance: ONABOTULINUMTOXINA
     Indication: Migraine
     Dosage: TIME INTERVAL: AS NECESSARY: FORM STRENGTH: 200 IU, FREQUENCY: EVERY THREE MONTHS
     Route: 065
     Dates: start: 2021, end: 2021
  2. BOTOX [Suspect]
     Active Substance: ONABOTULINUMTOXINA
     Indication: Migraine
     Dosage: TIME INTERVAL: AS NECESSARY: OCT OR NOV 2023, FREQUENCY : EVERY THREE MONTHS
     Route: 065
  3. LOSARTAN POTASSIUM [Concomitant]
     Active Substance: LOSARTAN POTASSIUM
     Indication: Blood pressure abnormal
     Dosage: FORM STRENGTH: 50 MILLIGRAM
  4. BUPRENORPHINE [Suspect]
     Active Substance: BUPRENORPHINE
     Indication: Back pain
     Dosage: FORM STRENGTH: 10 MILLIGRAM
     Route: 062
     Dates: start: 202402, end: 20240426
  5. TAMSULOSIN HYDROCHLORIDE [Concomitant]
     Active Substance: TAMSULOSIN HYDROCHLORIDE
     Indication: Micturition disorder
     Dosage: FORM STRENGTH: 0.4 MILLIGRAM
     Dates: start: 2022
  6. LISADOR DIP [Concomitant]
     Indication: Headache
     Dosage: FORM STRENGTH: 1 GRAM
  7. METOPROLOL SUCCINATE [Concomitant]
     Active Substance: METOPROLOL SUCCINATE
     Indication: Arrhythmia
     Dosage: FORM STRENGTH: 25 MILLIGRAM
     Dates: start: 2017
  8. FLANAX CAPS [Concomitant]
     Active Substance: NAPROXEN
     Indication: Migraine
     Dosage: FORM STRENGTH: 275 MILLIGRAM
  9. GABAPENTIN [Concomitant]
     Active Substance: GABAPENTIN
     Indication: Medical device pain
     Dosage: FORM STRENGTH: 300 MILLIGRAM
     Route: 048
     Dates: start: 2004
  10. NARATRIPTAN HYDROCHLORIDE [Concomitant]
     Active Substance: NARATRIPTAN HYDROCHLORIDE
     Indication: Migraine
     Dosage: 2.5
  11. Gaeso [Concomitant]
     Indication: Gastrointestinal disorder
     Dosage: FORM STRENGTH: 20 MILLIGRAM
     Dates: start: 2014
  12. AMLODIPINE [Concomitant]
     Active Substance: AMLODIPINE BESYLATE
     Indication: Blood pressure abnormal
     Dosage: FORM STRENGTH: 5 MILLIGRAM
  13. Milgamma [Concomitant]
     Indication: Medical device pain
     Dosage: FORM STRENGTH: 150 MILLIGRAM
     Route: 048
     Dates: start: 2004

REACTIONS (9)
  - Tendon rupture [Unknown]
  - Pain [Not Recovered/Not Resolved]
  - Application site pruritus [Unknown]
  - Headache [Not Recovered/Not Resolved]
  - Tendon rupture [Unknown]
  - Arthralgia [Recovering/Resolving]
  - Drug hypersensitivity [Unknown]
  - Insomnia [Not Recovered/Not Resolved]
  - Arthralgia [Recovering/Resolving]

NARRATIVE: CASE EVENT DATE: 20220101
